FAERS Safety Report 8781142 (Version 1)
Quarter: 2012Q4

REPORT INFORMATION
  Report Type: 
  Country: JP (occurrence: JP)
  Receive Date: 20120913
  Receipt Date: 20120913
  Transmission Date: 20130627
  Serious: Yes (Death)
  Sender: FDA-Public Use
  Company Number: PHHY2012JP078770

PATIENT
  Age: 36 Year
  Sex: Female

DRUGS (2)
  1. GLIVEC [Suspect]
     Indication: BLAST CRISIS IN MYELOGENOUS LEUKAEMIA
     Dosage: 600 mg, UNK
  2. GLIVEC [Suspect]
     Dosage: 800 mg, UNK

REACTIONS (4)
  - Death [Fatal]
  - Drug resistance [Unknown]
  - No therapeutic response [Unknown]
  - Treatment failure [Unknown]
